FAERS Safety Report 18915915 (Version 1)
Quarter: 2021Q1

REPORT INFORMATION
  Report Type: Spontaneous
  Country: US (occurrence: US)
  Receive Date: 20210219
  Receipt Date: 20210219
  Transmission Date: 20210420
  Serious: Yes (Death, Hospitalization)
  Sender: FDA-Public Use
  Company Number: None

PATIENT
  Sex: Female
  Weight: 1.55 kg

DRUGS (1)
  1. PEMETREXED. [Suspect]
     Active Substance: PEMETREXED

REACTIONS (3)
  - Pneumonia [None]
  - Dyspnoea [None]
  - Pulmonary hypertension [None]

NARRATIVE: CASE EVENT DATE: 20190510
